FAERS Safety Report 16266074 (Version 1)
Quarter: 2019Q2

REPORT INFORMATION
  Report Type: Spontaneous
  Country: FR (occurrence: FR)
  Receive Date: 20190502
  Receipt Date: 20190502
  Transmission Date: 20190711
  Serious: Yes (Other)
  Sender: FDA-Public Use
  Company Number: FR-TEVA-2019-FR-1045341

PATIENT
  Age: 67 Year
  Sex: Male
  Weight: 98 kg

DRUGS (13)
  1. ISOSORBIDE MEDISOL [Suspect]
     Active Substance: ISOSORBIDE DINITRATE
     Indication: ANGIOPLASTY
     Route: 022
     Dates: start: 20190325, end: 20190325
  2. KARDEGIC [Concomitant]
     Active Substance: ASPIRIN DL-LYSINE
  3. ATORVASTATINE [Concomitant]
     Active Substance: ATORVASTATIN
  4. BISOPROLOL (HEMIFUMARATE DE) [Concomitant]
     Active Substance: BISOPROLOL FUMARATE
  5. ISOPTINE [Suspect]
     Active Substance: VERAPAMIL HYDROCHLORIDE
     Indication: ANGIOPLASTY
     Route: 022
     Dates: start: 20190325, end: 20190325
  6. BRILIQUE [Concomitant]
     Active Substance: TICAGRELOR
  7. XYLOCAINE [Suspect]
     Active Substance: LIDOCAINE HYDROCHLORIDE
     Indication: ANGIOPLASTY
     Route: 058
     Dates: start: 20190325, end: 20190325
  8. IOMERON [Suspect]
     Active Substance: IOMEPROL
     Indication: ANGIOPLASTY
     Route: 013
     Dates: start: 20190325, end: 20190325
  9. EPHEDRINE. [Suspect]
     Active Substance: EPHEDRINE
     Indication: ANGIOPLASTY
     Route: 042
     Dates: start: 20190325, end: 20190325
  10. STAGID [Concomitant]
     Active Substance: METFORMIN PAMOATE
  11. RAMIPRIL. [Suspect]
     Active Substance: RAMIPRIL
     Route: 065
  12. HEPARINE SODIQUE [Suspect]
     Active Substance: HEPARIN SODIUM
     Indication: ANGIOPLASTY
     Route: 022
     Dates: start: 20190325, end: 20190325
  13. BRINTELLIX [Concomitant]
     Active Substance: VORTIOXETINE HYDROBROMIDE

REACTIONS (2)
  - Erythema [Recovered/Resolved]
  - Pruritus [Recovered/Resolved]

NARRATIVE: CASE EVENT DATE: 20190326
